FAERS Safety Report 19230348 (Version 2)
Quarter: 2021Q3

REPORT INFORMATION
  Report Type: Spontaneous
  Country: US (occurrence: US)
  Receive Date: 20210507
  Receipt Date: 20210716
  Transmission Date: 20211014
  Serious: Yes (Hospitalization, Other)
  Sender: FDA-Public Use
  Company Number: US-APOTEX-2013AP009391

PATIENT
  Age: 70 Year
  Sex: Female

DRUGS (6)
  1. ROPINIROLE. [Concomitant]
     Active Substance: ROPINIROLE
     Indication: PRODUCT USED FOR UNKNOWN INDICATION
     Dosage: 5 MILLIGRAM, TID
     Route: 065
  2. QUETIAPINE. [Concomitant]
     Active Substance: QUETIAPINE
     Indication: PSYCHIATRIC SYMPTOM
     Dosage: 12.5 MILLIGRAM, Q. AF
     Route: 065
  3. ESCITALOPRAM [Concomitant]
     Active Substance: ESCITALOPRAM OXALATE
     Indication: PRODUCT USED FOR UNKNOWN INDICATION
     Route: 065
  4. CARBIDOPA AND LEVODOPA [Suspect]
     Active Substance: CARBIDOPA\LEVODOPA
     Dosage: UNK UNK, Q. AF (25/100, 1.5 TABLETS AT NIGHT AND ONE IN MORNING)
     Route: 065
  5. OLANZAPINE. [Concomitant]
     Active Substance: OLANZAPINE
     Indication: PSYCHIATRIC SYMPTOM
     Route: 065
  6. CARBIDOPA AND LEVODOPA [Suspect]
     Active Substance: CARBIDOPA\LEVODOPA
     Indication: PARKINSON^S DISEASE
     Dosage: UNK UNK, QD (25/100, 10 TO 14 TABS)
     Route: 065

REACTIONS (16)
  - Parkinson^s disease [Not Recovered/Not Resolved]
  - Drug dependence [Unknown]
  - Freezing phenomenon [Unknown]
  - Behaviour disorder [Unknown]
  - Psychotic disorder [Unknown]
  - Hallucination, auditory [Recovering/Resolving]
  - Psychiatric symptom [Unknown]
  - Disinhibition [Not Recovered/Not Resolved]
  - Hallucination [Recovering/Resolving]
  - Factitious disorder [Unknown]
  - Hallucination, visual [Recovering/Resolving]
  - Withdrawal syndrome [Unknown]
  - Delusion [Recovering/Resolving]
  - Intentional overdose [Unknown]
  - Intentional product misuse [Unknown]
  - Depression [Unknown]
